FAERS Safety Report 13611746 (Version 2)
Quarter: 2017Q3

REPORT INFORMATION
  Report Type: Report from Study
  Country: None (occurrence: US)
  Receive Date: 20170605
  Receipt Date: 20170907
  Transmission Date: 20171127
  Serious: Yes (Hospitalization, Other)
  Sender: FDA-Public Use
  Company Number: US-ABBVIE-17K-163-1940790-00

PATIENT
  Age: 71 Year
  Sex: Male

DRUGS (7)
  1. HUMIRA [Suspect]
     Active Substance: ADALIMUMAB
     Route: 058
     Dates: start: 20160531, end: 20160531
  2. HUMIRA [Suspect]
     Active Substance: ADALIMUMAB
     Route: 058
     Dates: start: 201606, end: 201606
  3. TESTOSTERONE. [Concomitant]
     Active Substance: TESTOSTERONE
     Indication: BLOOD TESTOSTERONE DECREASED
  4. HUMIRA [Suspect]
     Active Substance: ADALIMUMAB
     Route: 058
     Dates: start: 20170818
  5. HUMIRA [Suspect]
     Active Substance: ADALIMUMAB
     Indication: CROHN^S DISEASE
     Route: 058
     Dates: start: 2015
  6. HUMIRA [Suspect]
     Active Substance: ADALIMUMAB
     Route: 058
     Dates: start: 201606, end: 201704
  7. HUMIRA [Suspect]
     Active Substance: ADALIMUMAB
     Route: 058
     Dates: start: 201705, end: 20170706

REACTIONS (25)
  - Nuclear magnetic resonance imaging brain abnormal [Not Recovered/Not Resolved]
  - Mobility decreased [Recovering/Resolving]
  - Unresponsive to stimuli [Recovered/Resolved]
  - Transient ischaemic attack [Recovered/Resolved]
  - Pain [Recovering/Resolving]
  - Injection site pain [Recovered/Resolved]
  - Weight decreased [Unknown]
  - Anxiety [Recovering/Resolving]
  - Diarrhoea [Recovered/Resolved]
  - Abdominal pain upper [Unknown]
  - Extrasystoles [Recovered/Resolved]
  - Memory impairment [Not Recovered/Not Resolved]
  - Ligament rupture [Not Recovered/Not Resolved]
  - Procedural pain [Unknown]
  - Loss of personal independence in daily activities [Unknown]
  - Asthenia [Recovering/Resolving]
  - Depressed mood [Unknown]
  - Vomiting [Recovered/Resolved]
  - Stress [Recovered/Resolved]
  - Insomnia [Unknown]
  - Osteoarthritis [Recovered/Resolved]
  - Transient ischaemic attack [Not Recovered/Not Resolved]
  - Decreased appetite [Unknown]
  - Ageusia [Unknown]
  - Hypertension [Recovering/Resolving]

NARRATIVE: CASE EVENT DATE: 2015
